FAERS Safety Report 12889639 (Version 1)
Quarter: 2016Q4

REPORT INFORMATION
  Report Type: Spontaneous
  Country: US (occurrence: US)
  Receive Date: 20161027
  Receipt Date: 20161027
  Transmission Date: 20170207
  Serious: No
  Sender: FDA-Public Use
  Company Number: US-BAYER-2016-204367

PATIENT
  Age: 7 Year
  Sex: Male

DRUGS (3)
  1. METHOTREXATE. [Concomitant]
     Active Substance: METHOTREXATE
     Indication: DESMOID TUMOUR
  2. SORAFENIB (RAF KINASE INHIBITOR) [Suspect]
     Active Substance: SORAFENIB
     Indication: DESMOID TUMOUR
  3. VINBLASTINE [Concomitant]
     Active Substance: VINBLASTINE
     Indication: DESMOID TUMOUR

REACTIONS (1)
  - Off label use [None]
